FAERS Safety Report 7786994-5 (Version None)
Quarter: 2011Q3

REPORT INFORMATION
  Report Type: 
  Country: None (occurrence: None)
  Receive Date: 20110929
  Receipt Date: 20110920
  Transmission Date: 20111222
  Serious: Yes (Other)
  Sender: FDA-Public Use
  Company Number: US-US-EMD SERONO, INC.-7085126

PATIENT
  Sex: Male

DRUGS (1)
  1. SAIZEN [Suspect]
     Indication: GROWTH RETARDATION
     Dates: start: 20091004, end: 20110801

REACTIONS (2)
  - CARDIAC VALVE DISEASE [None]
  - RHEUMATIC FEVER [None]
